FAERS Safety Report 12672262 (Version 1)
Quarter: 2016Q3

REPORT INFORMATION
  Report Type: Spontaneous
  Country: PE (occurrence: PE)
  Receive Date: 20160822
  Receipt Date: 20160822
  Transmission Date: 20161109
  Serious: Yes (Hospitalization, Other)
  Sender: FDA-Public Use
  Company Number: PE-BAYER-2016-161895

PATIENT
  Age: 21 Day
  Weight: 2.8 kg

DRUGS (3)
  1. CLOPIDOGREL [Concomitant]
     Active Substance: CLOPIDOGREL BISULFATE
     Dosage: 2 MG/KG, UNK
  2. ACETYLSALICYLIC ACID (} 100 MG) [Suspect]
     Active Substance: ASPIRIN
     Indication: ANTIPLATELET THERAPY
     Dosage: 5 MG/KG, ONCE
  3. HEPARIN [Concomitant]
     Active Substance: HEPARIN SODIUM
     Dosage: 100 IU/KG, UNK

REACTIONS (2)
  - Arteriospasm coronary [Recovered/Resolved]
  - Product use issue [None]
